FAERS Safety Report 11275383 (Version 2)
Quarter: 2016Q1

REPORT INFORMATION
  Report Type: Spontaneous
  Country: US (occurrence: US)
  Receive Date: 20150716
  Receipt Date: 20160322
  Transmission Date: 20160525
  Serious: Yes (Hospitalization)
  Sender: FDA-Public Use
  Company Number: US-SUN PHARMACEUTICAL INDUSTRIES LTD-2015US-96171

PATIENT
  Age: 44 Year
  Sex: Female

DRUGS (2)
  1. ATENOLOL/CHLORTALIDONE [Suspect]
     Active Substance: ATENOLOL\CHLORTHALIDONE
     Indication: PRODUCT USED FOR UNKNOWN INDICATION
     Dosage: UNK
     Route: 048
  2. LISINOPRIL. [Suspect]
     Active Substance: LISINOPRIL
     Indication: PRODUCT USED FOR UNKNOWN INDICATION
     Dosage: UNK
     Route: 048

REACTIONS (7)
  - Overdose [Unknown]
  - Acute respiratory distress syndrome [Unknown]
  - Condition aggravated [Unknown]
  - Hypotension [Unknown]
  - Renal failure [Recovered/Resolved]
  - Cardiotoxicity [Unknown]
  - Mental status changes [Unknown]
